FAERS Safety Report 8431528-5 (Version None)
Quarter: 2012Q2

REPORT INFORMATION
  Report Type: 
  Country: None (occurrence: None)
  Receive Date: 20120607
  Receipt Date: 20120607
  Transmission Date: 20120825
  Serious: Yes (Other)
  Sender: FDA-Public Use
  Company Number: None

PATIENT
  Sex: Male
  Weight: 72.5755 kg

DRUGS (1)
  1. GABAPENTIN [Suspect]
     Indication: PAIN
     Dosage: 300 MG 3X DAILY ORAL
     Route: 048
     Dates: start: 20120508, end: 20120511

REACTIONS (9)
  - HOSTILITY [None]
  - SELF-INJURIOUS IDEATION [None]
  - INADEQUATE ANALGESIA [None]
  - GAIT DISTURBANCE [None]
  - DEPRESSION [None]
  - COORDINATION ABNORMAL [None]
  - MOOD ALTERED [None]
  - MENTAL STATUS CHANGES [None]
  - ANXIETY [None]
